FAERS Safety Report 6264126-2 (Version None)
Quarter: 2009Q3

REPORT INFORMATION
  Report Type: 
  Country: None (occurrence: None)
  Receive Date: 20090710
  Receipt Date: 20090623
  Transmission Date: 20100115
  Serious: Yes (Hospitalization)
  Sender: FDA-Public Use
  Company Number: US-PFIZER INC-2009233225

PATIENT
  Sex: Male

DRUGS (1)
  1. DILANTIN-125 [Suspect]
     Dosage: UNK MG, UNK

REACTIONS (7)
  - CONVULSION [None]
  - HAEMATEMESIS [None]
  - IMPAIRED DRIVING ABILITY [None]
  - INTESTINAL FUNCTIONAL DISORDER [None]
  - NERVOUSNESS [None]
  - OVERDOSE [None]
  - VISUAL ACUITY REDUCED [None]
